FAERS Safety Report 17967668 (Version 1)
Quarter: 2020Q3

REPORT INFORMATION
  Report Type: Spontaneous
  Country: US (occurrence: US)
  Receive Date: 20200701
  Receipt Date: 20200701
  Transmission Date: 20201103
  Serious: No
  Sender: FDA-Public Use
  Company Number: US-PFIZER INC-2020214685

PATIENT
  Age: 80 Year
  Sex: Female
  Weight: 78.02 kg

DRUGS (1)
  1. IBRANCE [Suspect]
     Active Substance: PALBOCICLIB
     Indication: BREAST CANCER METASTATIC
     Dosage: 75 MG, CYCLIC (ONCE A DAY FOR 3 WEEKS AND THEN OFF FOR A WEEK)
     Route: 048
     Dates: start: 2020

REACTIONS (3)
  - Memory impairment [Unknown]
  - Product odour abnormal [Unknown]
  - Poor quality product administered [Unknown]
